FAERS Safety Report 7112891-4 (Version None)
Quarter: 2010Q4

REPORT INFORMATION
  Report Type: 
  Country: None (occurrence: None)
  Receive Date: 20101119
  Receipt Date: 20100413
  Transmission Date: 20110411
  Serious: No
  Sender: FDA-Public Use
  Company Number: US-BRISTOL-MYERS SQUIBB COMPANY-15069131

PATIENT
  Age: 67 Year
  Sex: Male

DRUGS (2)
  1. AVALIDE [Suspect]
  2. WINE [Suspect]

REACTIONS (3)
  - DEHYDRATION [None]
  - FATIGUE [None]
  - NOCTURIA [None]
